FAERS Safety Report 21796500 (Version 1)
Quarter: 2022Q4

REPORT INFORMATION
  Report Type: Report from Study
  Country: US (occurrence: US)
  Receive Date: 20221229
  Receipt Date: 20221229
  Transmission Date: 20230112
  Serious: No
  Sender: FDA-Public Use
  Company Number: US-ABBVIE-4208609

PATIENT
  Sex: Male

DRUGS (1)
  1. RINVOQ [Suspect]
     Active Substance: UPADACITINIB
     Indication: Eczema
     Dosage: FORM STRENGTH: 15 MG
     Route: 048
     Dates: start: 20221001

REACTIONS (4)
  - Gastrooesophageal reflux disease [Unknown]
  - Pharyngitis streptococcal [Recovering/Resolving]
  - Vomiting [Unknown]
  - Illness [Unknown]

NARRATIVE: CASE EVENT DATE: 20220101
